FAERS Safety Report 8229130-3 (Version None)
Quarter: 2012Q1

REPORT INFORMATION
  Report Type: 
  Country: None (occurrence: None)
  Receive Date: 20120322
  Receipt Date: 20120314
  Transmission Date: 20120608
  Serious: Yes (Hospitalization)
  Sender: FDA-Public Use
  Company Number: US-ALEXION-A201200438

PATIENT
  Sex: Male

DRUGS (4)
  1. SOLIRIS [Suspect]
     Indication: PAROXYSMAL NOCTURNAL HAEMOGLOBINURIA
     Dosage: 600 MG, QW
     Route: 042
  2. SOLIRIS [Suspect]
     Dosage: 900 MG, Q2W
     Route: 042
  3. ARIXTRA [Concomitant]
     Dosage: UNK
  4. ANTIPSYCHOTICS [Concomitant]
     Indication: MENTAL DISORDER
     Dosage: UNK

REACTIONS (2)
  - DENTAL CARIES [None]
  - TOOTH INFECTION [None]
